FAERS Safety Report 4854215-9 (Version None)
Quarter: 2005Q4

REPORT INFORMATION
  Report Type: 
  Country: None (occurrence: None)
  Receive Date: 20051213
  Receipt Date: 20051116
  Transmission Date: 20060501
  Serious: Yes (Other)
  Sender: FDA-Public Use
  Company Number: 2005115691

PATIENT
  Age: 44 Year
  Sex: Male
  Weight: 71.6683 kg

DRUGS (2)
  1. VIAGRA [Suspect]
     Indication: ERECTILE DYSFUNCTION
     Dosage: 100 MG (50 MG, AS NECESSARY),
     Dates: start: 20050601
  2. ANTI-PARKINSON AGENTS (ANTI-PARKINSON AGENTS) [Concomitant]

REACTIONS (4)
  - BLADDER OBSTRUCTION [None]
  - DRUG INEFFECTIVE [None]
  - SCAR [None]
  - SKIN CANCER [None]
